FAERS Safety Report 21602710 (Version 1)
Quarter: 2022Q4

REPORT INFORMATION
  Report Type: Spontaneous
  Country: US (occurrence: None)
  Receive Date: 20221115
  Receipt Date: 20221115
  Transmission Date: 20230112
  Serious: Yes (Disabling)
  Sender: FDA-Public Use
  Company Number: None

PATIENT
  Age: 79 Year
  Sex: Female
  Weight: 70 kg

DRUGS (1)
  1. TENECTEPLASE [Suspect]
     Active Substance: TENECTEPLASE
     Indication: Ischaemic stroke
     Dosage: 17 MG ONCE INTRAVENOUS BOLOUS?
     Route: 052
     Dates: start: 20220730

REACTIONS (8)
  - Hemiparesis [None]
  - Headache [None]
  - Cerebrovascular accident [None]
  - Nausea [None]
  - Vomiting [None]
  - Drug ineffective [None]
  - Haemorrhagic stroke [None]
  - Vasogenic cerebral oedema [None]

NARRATIVE: CASE EVENT DATE: 20220730
